FAERS Safety Report 7707671-2 (Version None)
Quarter: 2011Q3

REPORT INFORMATION
  Report Type: 
  Country: None (occurrence: None)
  Receive Date: 20110824
  Receipt Date: 20110816
  Transmission Date: 20111222
  Serious: Yes (Other)
  Sender: FDA-Public Use
  Company Number: PHHY2011GB73423

PATIENT
  Age: 71 Year
  Sex: Male

DRUGS (5)
  1. ACETYLSALICYLIC ACID [Suspect]
     Indication: TYPE 2 DIABETES MELLITUS
  2. RAMIPRIL [Suspect]
     Indication: TYPE 2 DIABETES MELLITUS
  3. ULTRAVIOLET LIGHT [Suspect]
  4. METFORMIN HYDROCHLORIDE [Suspect]
     Indication: TYPE 2 DIABETES MELLITUS
  5. SIMAVASTATIN [Suspect]
     Indication: HYPERCHOLESTEROLAEMIA

REACTIONS (5)
  - NAEVUS FLAMMEUS [None]
  - ACTINIC ELASTOSIS [None]
  - RASH MACULAR [None]
  - SKIN DISCOLOURATION [None]
  - RASH ERYTHEMATOUS [None]
